FAERS Safety Report 11501444 (Version 3)
Quarter: 2015Q4

REPORT INFORMATION
  Report Type: Spontaneous
  Country: AU (occurrence: AU)
  Receive Date: 20150914
  Receipt Date: 20151207
  Transmission Date: 20160304
  Serious: Yes (Death, Life-Threatening, Hospitalization, Other)
  Sender: FDA-Public Use
  Company Number: AU-ASTELLAS-2015US032528

PATIENT
  Age: 84 Year
  Sex: Male

DRUGS (7)
  1. LUCRIN [Concomitant]
     Active Substance: LEUPROLIDE ACETATE
     Indication: ROUTINE HEALTH MAINTENANCE
  2. XGEVA [Concomitant]
     Active Substance: DENOSUMAB
     Indication: ROUTINE HEALTH MAINTENANCE
  3. LUCRIN [Concomitant]
     Active Substance: LEUPROLIDE ACETATE
     Indication: PROSTATE CANCER
     Dosage: 22.5 MG, 3 MONTHLY
     Route: 030
     Dates: start: 20100101, end: 20150921
  4. XGEVA [Concomitant]
     Active Substance: DENOSUMAB
     Indication: METASTATIC NEOPLASM
  5. XTANDI [Suspect]
     Active Substance: ENZALUTAMIDE
     Indication: HORMONE-REFRACTORY PROSTATE CANCER
     Route: 048
     Dates: start: 20150121, end: 20150921
  6. CALCITRIOL. [Concomitant]
     Active Substance: CALCITRIOL
     Indication: HYPERPARATHYROIDISM SECONDARY
     Dosage: 0.25 ?G, THRICE WEEKLY
     Route: 048
  7. XGEVA [Concomitant]
     Active Substance: DENOSUMAB
     Indication: PROSTATE CANCER
     Route: 058
     Dates: start: 20100101, end: 20150921

REACTIONS (13)
  - Death [Fatal]
  - Anaemia [Fatal]
  - Abdominal discomfort [Unknown]
  - Disseminated intravascular coagulation [Fatal]
  - Drug dose omission [Unknown]
  - Pulmonary haemorrhage [Fatal]
  - Dyspnoea [Fatal]
  - Malignant neoplasm progression [Unknown]
  - Flatulence [Unknown]
  - Intra-abdominal haemorrhage [Fatal]
  - Haematuria [Fatal]
  - Prostatic specific antigen increased [Fatal]
  - Treatment noncompliance [Unknown]

NARRATIVE: CASE EVENT DATE: 20150327
